FAERS Safety Report 20485583 (Version 1)
Quarter: 2022Q1

REPORT INFORMATION
  Report Type: Spontaneous
  Country: IE (occurrence: IE)
  Receive Date: 20220217
  Receipt Date: 20220217
  Transmission Date: 20220424
  Serious: Yes (Life-Threatening, Hospitalization, Other)
  Sender: FDA-Public Use
  Company Number: IE-AMGEN-IRLSP2022024503

PATIENT
  Age: 61 Year
  Sex: Female

DRUGS (1)
  1. PROLIA [Suspect]
     Active Substance: DENOSUMAB
     Indication: Osteoporosis
     Dosage: UNK UNK, Q6MO
     Route: 058

REACTIONS (3)
  - Pneumonia aspiration [Unknown]
  - Adverse drug reaction [Unknown]
  - Dysphagia [Unknown]

NARRATIVE: CASE EVENT DATE: 20210101
